FAERS Safety Report 8189888-9 (Version None)
Quarter: 2012Q1

REPORT INFORMATION
  Report Type: 
  Country: None (occurrence: None)
  Receive Date: 20120307
  Receipt Date: 20120302
  Transmission Date: 20120608
  Serious: Yes (Death, Hospitalization)
  Sender: FDA-Public Use
  Company Number: ES-JNJFOC-20120112636

PATIENT
  Age: 78 Year
  Sex: Male

DRUGS (8)
  1. ZYTIGA [Suspect]
     Indication: PROSTATE CANCER METASTATIC
     Route: 048
     Dates: start: 20120130
  2. ZYTIGA [Suspect]
     Route: 048
     Dates: start: 20120119, end: 20120123
  3. SINTROM [Concomitant]
     Indication: ANTICOAGULANT THERAPY
  4. ALLOPURINOL [Concomitant]
     Indication: PRODUCT USED FOR UNKNOWN INDICATION
     Route: 065
  5. ANTIANDROGEN [Concomitant]
     Indication: ANTIANDROGEN THERAPY
     Route: 065
  6. PREDNISONE TAB [Concomitant]
     Indication: PROSTATE CANCER METASTATIC
     Route: 065
     Dates: start: 20120119, end: 20120123
  7. MANIDON [Concomitant]
     Indication: PRODUCT USED FOR UNKNOWN INDICATION
     Route: 065
  8. ACETENSIL [Concomitant]
     Indication: PRODUCT USED FOR UNKNOWN INDICATION
     Route: 065

REACTIONS (3)
  - SUPRAVENTRICULAR TACHYCARDIA [None]
  - CARDIAC ARREST [None]
  - SYNCOPE [None]
